FAERS Safety Report 7969589-X (Version None)
Quarter: 2011Q4

REPORT INFORMATION
  Report Type: 
  Country: None (occurrence: None)
  Receive Date: 20111212
  Receipt Date: 20111207
  Transmission Date: 20120403
  Serious: Yes (Other)
  Sender: FDA-Public Use
  Company Number: US-PFIZER INC-2011240448

PATIENT
  Age: 63 Year
  Sex: Female
  Weight: 81.179 kg

DRUGS (4)
  1. METOPROLOL [Concomitant]
     Indication: BLOOD PRESSURE ABNORMAL
     Dosage: 50 MG, 2X/DAY
  2. HYDROCODONE [Concomitant]
     Indication: PAIN
     Dosage: 5/500 MG AS NEEDED
  3. DILANTIN [Suspect]
     Indication: CONVULSION
     Dosage: 200 MG, 2X/DAY
     Route: 048
     Dates: start: 20090101
  4. TRIAMTERENE [Concomitant]
     Indication: BLOOD PRESSURE ABNORMAL
     Dosage: 75 MG, DAILY

REACTIONS (11)
  - SWOLLEN TONGUE [None]
  - OROPHARYNGEAL PAIN [None]
  - ORAL PAIN [None]
  - PAIN IN EXTREMITY [None]
  - BALANCE DISORDER [None]
  - GLOSSODYNIA [None]
  - DIZZINESS [None]
  - RASH [None]
  - DYSPNOEA [None]
  - GINGIVAL SWELLING [None]
  - GINGIVAL BLEEDING [None]
